FAERS Safety Report 7662079-3 (Version None)
Quarter: 2011Q3

REPORT INFORMATION
  Report Type: 
  Country: None (occurrence: None)
  Receive Date: 20110805
  Receipt Date: 20101206
  Transmission Date: 20111222
  Serious: No
  Sender: FDA-Public Use
  Company Number: US-ABBOTT-10P-163-0690423-00

PATIENT
  Age: 77 Year
  Sex: Male
  Weight: 100.79 kg

DRUGS (15)
  1. NIASPAN [Suspect]
     Indication: BLOOD CHOLESTEROL INCREASED
     Dosage: NOT AVAILABLE.
     Route: 048
  2. PRODAXA [Concomitant]
     Indication: CARDIAC DISORDER
     Route: 048
     Dates: end: 20101206
  3. HYDROCHLOROTHIAZIDE [Concomitant]
     Indication: PRODUCT USED FOR UNKNOWN INDICATION
  4. ASCORBIC ACID [Concomitant]
     Indication: PRODUCT USED FOR UNKNOWN INDICATION
     Route: 048
  5. ZETIA [Concomitant]
     Indication: PRODUCT USED FOR UNKNOWN INDICATION
     Route: 048
  6. BENICAR [Concomitant]
     Indication: CARDIAC DISORDER
  7. GLIMEPIRIDE [Concomitant]
     Indication: DIABETES MELLITUS
  8. ASPIRIN [Concomitant]
     Indication: PRODUCT USED FOR UNKNOWN INDICATION
     Route: 048
  9. LECITHIN [Concomitant]
     Indication: PRODUCT USED FOR UNKNOWN INDICATION
  10. GARLIC PILLS [Concomitant]
     Indication: PRODUCT USED FOR UNKNOWN INDICATION
  11. HYTRIN [Concomitant]
     Indication: PRODUCT USED FOR UNKNOWN INDICATION
     Route: 048
  12. ZINC [Concomitant]
     Indication: PRODUCT USED FOR UNKNOWN INDICATION
  13. SOTALOL HCL [Concomitant]
     Indication: CARDIAC DISORDER
  14. VITAMIN E [Concomitant]
     Indication: PRODUCT USED FOR UNKNOWN INDICATION
     Route: 048
  15. FENOFIBRATE [Concomitant]
     Indication: PRODUCT USED FOR UNKNOWN INDICATION

REACTIONS (4)
  - FEELING ABNORMAL [None]
  - SKIN BURNING SENSATION [None]
  - FEELING HOT [None]
  - INCORRECT DRUG ADMINISTRATION DURATION [None]
